FAERS Safety Report 9071965 (Version 1)
Quarter: 2013Q1

REPORT INFORMATION
  Report Type: Report from Study
  Country: US (occurrence: US)
  Receive Date: 20130129
  Receipt Date: 20130129
  Transmission Date: 20140127
  Serious: No
  Sender: FDA-Public Use
  Company Number: US-ABBOTT-12P-163-0928126-00

PATIENT
  Sex: Female
  Weight: 90.8 kg

DRUGS (8)
  1. HUMIRA 40 MG/0.8 ML PEN [Suspect]
     Indication: RHEUMATOID ARTHRITIS
     Route: 058
     Dates: start: 2010
  2. AMITRIPTYLINE [Concomitant]
     Indication: PRODUCT USED FOR UNKNOWN INDICATION
  3. LYRICA [Concomitant]
     Indication: NEUROPATHY PERIPHERAL
  4. DIOVAN [Concomitant]
     Indication: BLOOD PRESSURE
  5. METFORMIN/GLYBURIDE [Concomitant]
     Indication: DIABETES MELLITUS
  6. TRAMADOL [Concomitant]
     Indication: PAIN
  7. METHOTREXATE [Concomitant]
     Indication: RHEUMATOID ARTHRITIS
  8. CARISOPRODOL [Concomitant]
     Indication: RHEUMATOID ARTHRITIS

REACTIONS (1)
  - Acne [Not Recovered/Not Resolved]
